FAERS Safety Report 7222215-X (Version None)
Quarter: 2011Q1

REPORT INFORMATION
  Report Type: 
  Country: None (occurrence: None)
  Receive Date: 20110112
  Receipt Date: 20110104
  Transmission Date: 20110831
  Serious: Yes (Hospitalization)
  Sender: FDA-Public Use
  Company Number: FR-ASTRAZENECA-2011SE01063

PATIENT
  Age: 24 Year
  Sex: Male

DRUGS (7)
  1. NEXIUM [Suspect]
     Route: 048
     Dates: start: 20101001, end: 20101214
  2. ARACYTIN [Suspect]
     Dosage: EVERY OTHER DAY
     Dates: start: 20101013, end: 20101019
  3. NOXAFIL [Suspect]
     Route: 048
     Dates: start: 20101012, end: 20101122
  4. AMSACRINE [Concomitant]
     Dates: start: 20101013, end: 20101015
  5. VANCOMYCIN [Concomitant]
     Dates: start: 20101110, end: 20101119
  6. AXEPIM [Concomitant]
     Dates: start: 20101106, end: 20101124
  7. TAZOCILLINE [Concomitant]
     Dates: start: 20101026, end: 20101105

REACTIONS (2)
  - HEPATITIS CHOLESTATIC [None]
  - CYTOLYTIC HEPATITIS [None]
